FAERS Safety Report 4926808-1 (Version None)
Quarter: 2006Q1

REPORT INFORMATION
  Report Type: 
  Country: None (occurrence: None)
  Receive Date: 20060228
  Receipt Date: 20050621
  Transmission Date: 20060701
  Serious: No
  Sender: FDA-Public Use
  Company Number: 409698

PATIENT
  Age: 26 Year
  Sex: Female

DRUGS (3)
  1. LAMICTAL [Suspect]
     Indication: BIPOLAR DISORDER
     Dosage: 100MG PER DAY
     Route: 048
     Dates: end: 20050620
  2. TRAZODONE [Concomitant]
  3. WELLBUTRIN XL [Concomitant]

REACTIONS (5)
  - ACNE CYSTIC [None]
  - ERYTHEMA [None]
  - PRURITUS [None]
  - SUNBURN [None]
  - URTICARIA [None]
